FAERS Safety Report 11750331 (Version 3)
Quarter: 2015Q4

REPORT INFORMATION
  Report Type: Spontaneous
  Country: US (occurrence: US)
  Receive Date: 20151118
  Receipt Date: 20151221
  Transmission Date: 20160304
  Serious: No
  Sender: FDA-Public Use
  Company Number: US-PFIZER INC-2015394260

PATIENT
  Age: 60 Year
  Sex: Male
  Weight: 99 kg

DRUGS (2)
  1. ATORVASTATIN [Concomitant]
     Active Substance: ATORVASTATIN
     Indication: BLOOD CHOLESTEROL INCREASED
     Dosage: 20 MG, DAILY
     Route: 048
  2. DEPO-TESTOSTERONE [Suspect]
     Active Substance: TESTOSTERONE CYPIONATE
     Indication: BLOOD TESTOSTERONE DECREASED
     Dosage: 400 MG, MONTHLY (ONCE IN A MONTH)
     Route: 030
     Dates: start: 201401

REACTIONS (8)
  - Injection site swelling [Not Recovered/Not Resolved]
  - Drug ineffective [Unknown]
  - Hypersensitivity [Unknown]
  - Urticaria [Not Recovered/Not Resolved]
  - Injection site erythema [Unknown]
  - Rash [Not Recovered/Not Resolved]
  - Injection site pruritus [Unknown]
  - Skin irritation [Not Recovered/Not Resolved]

NARRATIVE: CASE EVENT DATE: 201510
